FAERS Safety Report 12937798 (Version 2)
Quarter: 2016Q4

REPORT INFORMATION
  Report Type: Spontaneous
  Country: JP (occurrence: JP)
  Receive Date: 20161114
  Receipt Date: 20161202
  Transmission Date: 20170207
  Serious: Yes (Other)
  Sender: FDA-Public Use
  Company Number: JP-GUERBET LLC-1059505

PATIENT
  Age: 78 Year
  Sex: Male

DRUGS (1)
  1. OPTIRAY PBP [Suspect]
     Active Substance: IOVERSOL
     Indication: PERCUTANEOUS CORONARY INTERVENTION
     Dates: start: 2015, end: 2015

REACTIONS (1)
  - Fixed drug eruption [Recovered/Resolved]
